FAERS Safety Report 5717472-2 (Version None)
Quarter: 2008Q2

REPORT INFORMATION
  Report Type: 
  Country: None (occurrence: None)
  Receive Date: 20080424
  Receipt Date: 20080424
  Transmission Date: 20081010
  Serious: Yes (Life-Threatening, Hospitalization)
  Sender: FDA-Public Use
  Company Number: None

PATIENT
  Age: 59 Year
  Sex: Male
  Weight: 69 kg

DRUGS (2)
  1. NEVIRAPINE [Suspect]
     Indication: HIV INFECTION
     Dosage: 200 MG BID PO
     Route: 048
     Dates: start: 20071026, end: 20071120
  2. LAMIVUDINE + ZIDOVUDINE [Suspect]
     Indication: HIV INFECTION
     Dosage: 1 TAB BID PO
     Route: 048
     Dates: start: 20070907, end: 20071120

REACTIONS (10)
  - ACTIVITIES OF DAILY LIVING IMPAIRED [None]
  - DEEP VEIN THROMBOSIS [None]
  - DEMENTIA [None]
  - HEPATIC ENZYME INCREASED [None]
  - JAUNDICE [None]
  - PANCYTOPENIA [None]
  - PRURITUS [None]
  - PYREXIA [None]
  - RASH [None]
  - URTICARIA [None]
